FAERS Safety Report 6210331-0 (Version None)
Quarter: 2009Q2

REPORT INFORMATION
  Report Type: 
  Country: None (occurrence: None)
  Receive Date: 20090601
  Receipt Date: 20090521
  Transmission Date: 20091009
  Serious: Yes (Other)
  Sender: FDA-Public Use
  Company Number: PHHY2009JP19885

PATIENT
  Sex: Female

DRUGS (14)
  1. ICL670A ICL+DISTAB [Suspect]
     Indication: IRON OVERLOAD
     Dosage: 1000 MG DAILY
     Route: 048
     Dates: start: 20081001, end: 20081003
  2. ICL670A ICL+DISTAB [Suspect]
     Dosage: 250 MG DAILY
     Route: 048
     Dates: start: 20081022, end: 20081022
  3. ICL670A ICL+DISTAB [Suspect]
     Dosage: 125 MG DAILY
     Route: 048
     Dates: start: 20081105, end: 20081125
  4. NEORAL [Concomitant]
     Dosage: 150 MG, UNK
     Route: 048
     Dates: start: 20081001
  5. LEVEMIR [Concomitant]
  6. METFORMIN HCL [Concomitant]
     Dosage: 750 MG, UNK
     Route: 048
  7. AMARYL [Concomitant]
     Dosage: 6 MG, UNK
     Route: 048
  8. MEVALOTIN [Concomitant]
     Dosage: 20 MG, UNK
     Route: 048
  9. BASEN [Concomitant]
     Dosage: 0.9 MG, UNK
     Route: 048
  10. BACTRAMIN [Concomitant]
     Indication: INFECTION PROPHYLAXIS
     Route: 048
  11. TRANSAMIN [Concomitant]
     Indication: HAEMORRHAGE PROPHYLAXIS
     Dosage: 750 MG, UNK
  12. ADONA [Concomitant]
     Indication: HAEMORRHAGE PROPHYLAXIS
     Dosage: 90 MG, UNK
     Route: 048
  13. SELBEX [Concomitant]
     Dosage: 150 MG, UNK
     Route: 048
  14. RED BLOOD CELLS [Concomitant]
     Dosage: 12 UNITS IN TOTAL
     Dates: start: 20081007, end: 20081216

REACTIONS (4)
  - BONE MARROW TRANSPLANT [None]
  - GENERALISED ERYTHEMA [None]
  - OEDEMA PERIPHERAL [None]
  - PYREXIA [None]
